FAERS Safety Report 8576387-5 (Version None)
Quarter: 2012Q3

REPORT INFORMATION
  Report Type: 
  Country: None (occurrence: None)
  Receive Date: 20120807
  Receipt Date: 20120731
  Transmission Date: 20120928
  Serious: Yes (Hospitalization)
  Sender: FDA-Public Use
  Company Number: CA-ROCHE-1095889

PATIENT
  Sex: Female
  Weight: 69 kg

DRUGS (4)
  1. AVASTIN [Suspect]
     Dates: start: 20120704, end: 20120722
  2. DECADRON PHOSPHATE [Concomitant]
  3. AVASTIN [Suspect]
     Indication: GLIOBLASTOMA
     Route: 042
     Dates: start: 20120522
  4. PANTOPRAZOLE SODIUM [Concomitant]

REACTIONS (2)
  - CONVULSION [None]
  - CONFUSIONAL STATE [None]
